FAERS Safety Report 5009304-5 (Version None)
Quarter: 2006Q2

REPORT INFORMATION
  Report Type: 
  Country: None (occurrence: None)
  Receive Date: 20060524
  Receipt Date: 20060512
  Transmission Date: 20061013
  Serious: Yes (Other)
  Sender: FDA-Public Use
  Company Number: PHBS2006CN07289

PATIENT
  Age: 25 Year
  Sex: Female

DRUGS (3)
  1. TEGRETOL [Suspect]
     Indication: EPILEPSY
     Dosage: 600 MG/DAY
     Route: 048
     Dates: start: 19970301
  2. TEGRETOL [Suspect]
     Dosage: 1000 MG/DAY
     Route: 048
  3. CLONAZEPAM [Concomitant]
     Dosage: 1 TABLET, TID
     Route: 048

REACTIONS (3)
  - ANTINUCLEAR ANTIBODY POSITIVE [None]
  - ERYTHEMA [None]
  - SCLERODERMA [None]
